FAERS Safety Report 8423902-8 (Version None)
Quarter: 2012Q2

REPORT INFORMATION
  Report Type: 
  Country: None (occurrence: None)
  Receive Date: 20120608
  Receipt Date: 20120530
  Transmission Date: 20120825
  Serious: No
  Sender: FDA-Public Use
  Company Number: US-ASTRAZENECA-2012SE36165

PATIENT
  Age: 40 Year
  Sex: Male

DRUGS (3)
  1. ACCUPRIL [Concomitant]
  2. TOPROL-XL [Suspect]
     Route: 048
  3. PLAVIX [Concomitant]

REACTIONS (3)
  - DRUG DOSE OMISSION [None]
  - BLOOD GLUCOSE INCREASED [None]
  - HYPERTENSION [None]
